FAERS Safety Report 9101602 (Version 1)
Quarter: 2013Q1

REPORT INFORMATION
  Report Type: Spontaneous
  Country: SE (occurrence: SE)
  Receive Date: 20130215
  Receipt Date: 20130215
  Transmission Date: 20140127
  Serious: Yes (Hospitalization)
  Sender: FDA-Public Use
  Company Number: SE-PFIZER INC-2013057175

PATIENT
  Age: 43 Year
  Sex: Female

DRUGS (2)
  1. LYRICA [Suspect]
     Indication: ANXIETY
     Dosage: 1500 MG, 1X/DAY
  2. ALCOHOL [Interacting]

REACTIONS (3)
  - Intentional drug misuse [Recovered/Resolved]
  - Drug interaction [Recovered/Resolved]
  - Euphoric mood [Recovered/Resolved]
